FAERS Safety Report 4388552-1 (Version None)
Quarter: 2004Q2

REPORT INFORMATION
  Report Type: 
  Country: None (occurrence: None)
  Receive Date: 20040624
  Receipt Date: 20040610
  Transmission Date: 20050107
  Serious: No
  Sender: FDA-Public Use
  Company Number: CART-10344

PATIENT
  Age: 27 Year
  Sex: Male

DRUGS (1)
  1. CARTICEL [Suspect]
     Indication: ARTHROPATHY
     Dosage: 1 NA ONCE IS
     Dates: start: 20031211, end: 20031211

REACTIONS (5)
  - ARTHRALGIA [None]
  - BONE DISORDER [None]
  - JOINT SWELLING [None]
  - SCAR [None]
  - TRANSPLANT FAILURE [None]
